FAERS Safety Report 6046162-4 (Version None)
Quarter: 2009Q1

REPORT INFORMATION
  Report Type: 
  Country: None (occurrence: None)
  Receive Date: 20090122
  Receipt Date: 20090119
  Transmission Date: 20090719
  Serious: Yes (Other)
  Sender: FDA-Public Use
  Company Number: JP-JNJFOC-20081204914

PATIENT
  Age: 77 Year
  Sex: Male

DRUGS (6)
  1. ITRIZOLE [Suspect]
     Indication: ASPERGILLOSIS
     Dosage: TOOK CONTINUOSLY FOR 2 YEARS
     Route: 048
  2. ITRIZOLE [Suspect]
     Indication: BRONCHOPULMONARY ASPERGILLOSIS
     Route: 041
  3. SULBACILLIN [Concomitant]
     Indication: PNEUMONIA ASPIRATION
     Route: 041
  4. SEPIDNARIN [Concomitant]
     Indication: PNEUMONIA ASPIRATION
     Route: 041
  5. TAKEPRON [Concomitant]
     Indication: PEPTIC ULCER
     Route: 041
  6. PREDONINE [Concomitant]
     Indication: INTERSTITIAL LUNG DISEASE
     Route: 041

REACTIONS (2)
  - PNEUMONIA ASPIRATION [None]
  - PYREXIA [None]
